FAERS Safety Report 9627989 (Version 1)
Quarter: 2013Q4

REPORT INFORMATION
  Report Type: Spontaneous
  Country: IT (occurrence: IT)
  Receive Date: 20131016
  Receipt Date: 20131016
  Transmission Date: 20140711
  Serious: Yes (Other)
  Sender: FDA-Public Use
  Company Number: IT-WATSON-2013-18624

PATIENT
  Age: 62 Year
  Sex: Male
  Weight: 58 kg

DRUGS (9)
  1. CARBOPLATIN (UNKNOWN) [Suspect]
     Indication: RETROPERITONEAL CANCER
     Dosage: 255 MG, PER CYCLE
     Route: 042
     Dates: start: 20130719, end: 20130926
  2. VEPESID [Suspect]
     Indication: RETROPERITONEAL CANCER
     Dosage: 110 MG, PER CYCLE
     Route: 042
     Dates: start: 20130719, end: 20130926
  3. ANTRA                              /00661201/ [Concomitant]
     Indication: PRODUCT USED FOR UNKNOWN INDICATION
     Dosage: 20 MG, UNK
  4. PLAUNAZIDE [Concomitant]
     Indication: PRODUCT USED FOR UNKNOWN INDICATION
     Dosage: UNK
  5. CLEXANE [Concomitant]
     Indication: PRODUCT USED FOR UNKNOWN INDICATION
     Dosage: 6000 UI/ 0.6 ML
  6. CIPROXIN                           /00697201/ [Concomitant]
     Indication: PRODUCT USED FOR UNKNOWN INDICATION
     Dosage: 500 MG, UNK
  7. ZYLORIC [Concomitant]
     Indication: PRODUCT USED FOR UNKNOWN INDICATION
     Dosage: UNK
  8. DUROGESIC [Concomitant]
     Indication: PRODUCT USED FOR UNKNOWN INDICATION
     Dosage: UNK
  9. CONTRAMAL [Concomitant]
     Indication: PRODUCT USED FOR UNKNOWN INDICATION
     Dosage: 100 MG/ML, UNK

REACTIONS (2)
  - Anaemia [Recovering/Resolving]
  - Erythropenia [Recovering/Resolving]
